FAERS Safety Report 24034213 (Version 1)
Quarter: 2024Q3

REPORT INFORMATION
  Report Type: Spontaneous
  Country: TW (occurrence: TW)
  Receive Date: 20240701
  Receipt Date: 20240701
  Transmission Date: 20241017
  Serious: Yes (Life-Threatening, Hospitalization)
  Sender: MACLEODS
  Company Number: TW-MACLEODS PHARMA-MAC2024047877

PATIENT

DRUGS (1)
  1. LACOSAMIDE [Suspect]
     Active Substance: LACOSAMIDE
     Indication: Status epilepticus
     Dosage: 200 MG WAS ADMINISTERED IN 100 ML OF NORMAL SALINE INFUSED AT A RATE OF 200 ML/H OVER 30 MIN
     Route: 042

REACTIONS (4)
  - Brugada syndrome [Recovered/Resolved]
  - Cardiac arrest [Recovered/Resolved]
  - Unmasking of previously unidentified disease [Recovered/Resolved]
  - Gene mutation [Recovered/Resolved]
